FAERS Safety Report 17044394 (Version 1)
Quarter: 2019Q4

REPORT INFORMATION
  Report Type: Spontaneous
  Country: US (occurrence: US)
  Receive Date: 20191118
  Receipt Date: 20191118
  Transmission Date: 20200122
  Serious: Yes (Hospitalization, Other)
  Sender: FDA-Public Use
  Company Number: US-JNJFOC-20191112588

PATIENT
  Age: 62 Year
  Sex: Male

DRUGS (3)
  1. STELARA [Suspect]
     Active Substance: USTEKINUMAB
     Indication: PYODERMA GANGRENOSUM
     Route: 058
  2. PREDNISONE. [Suspect]
     Active Substance: PREDNISONE
  3. CICLOSPORIN [Suspect]
     Active Substance: CYCLOSPORINE
     Dosage: FOR 3 MONTHS

REACTIONS (7)
  - Superinfection bacterial [Unknown]
  - Pneumocystis jirovecii pneumonia [Unknown]
  - Product use in unapproved indication [Unknown]
  - Off label use [Unknown]
  - Sporotrichosis [Recovered/Resolved]
  - Clostridium difficile colitis [Unknown]
  - Pneumonia [Unknown]
